FAERS Safety Report 7894638-7 (Version None)
Quarter: 2011Q4

REPORT INFORMATION
  Report Type: 
  Country: None (occurrence: None)
  Receive Date: 20111106
  Receipt Date: 20110817
  Transmission Date: 20120403
  Serious: No
  Sender: FDA-Public Use
  Company Number: US-AMGEN-USASP2011041909

PATIENT
  Age: 61 Year
  Sex: Male

DRUGS (1)
  1. ENBREL [Suspect]
     Indication: ANKYLOSING SPONDYLITIS
     Dosage: 50 MG, QWK
     Dates: start: 20060901, end: 20110721

REACTIONS (6)
  - PARANASAL SINUS HYPERSECRETION [None]
  - COUGH [None]
  - RESPIRATORY TRACT CONGESTION [None]
  - NASOPHARYNGITIS [None]
  - PRODUCTIVE COUGH [None]
  - SINUS CONGESTION [None]
